FAERS Safety Report 13161197 (Version 2)
Quarter: 2017Q1

REPORT INFORMATION
  Report Type: Spontaneous
  Country: IT (occurrence: IT)
  Receive Date: 20170130
  Receipt Date: 20170206
  Transmission Date: 20170428
  Serious: Yes (Other)
  Sender: FDA-Public Use
  Company Number: IT-ACCORD-047637

PATIENT
  Age: 3 Year
  Sex: Male

DRUGS (1)
  1. ONDANSETRON ACCORD [Suspect]
     Active Substance: ONDANSETRON
     Indication: VOMITING
     Dates: start: 20170110, end: 20170110

REACTIONS (5)
  - Muscle rigidity [Recovering/Resolving]
  - Oculogyric crisis [Recovering/Resolving]
  - Dyskinesia [Recovering/Resolving]
  - Stupor [Recovering/Resolving]
  - Aphasia [Recovering/Resolving]

NARRATIVE: CASE EVENT DATE: 20170110
